FAERS Safety Report 22070715 (Version 1)
Quarter: 2023Q1

REPORT INFORMATION
  Report Type: Report from Study
  Country: CA (occurrence: CA)
  Receive Date: 20230307
  Receipt Date: 20230307
  Transmission Date: 20230417
  Serious: Yes (Other)
  Sender: FDA-Public Use
  Company Number: CA-TAKEDA-2023TUS022106

PATIENT
  Age: 19 Year
  Sex: Female

DRUGS (2)
  1. VEDOLIZUMAB [Suspect]
     Active Substance: VEDOLIZUMAB
     Indication: Colitis ulcerative
     Dosage: 300 MILLIGRAM
     Route: 042
     Dates: start: 20230126
  2. Cortiment [Concomitant]
     Dosage: 9 MILLIGRAM

REACTIONS (3)
  - Seizure [Unknown]
  - Malaise [Unknown]
  - Fatigue [Unknown]

NARRATIVE: CASE EVENT DATE: 20230224
